FAERS Safety Report 12850992 (Version 1)
Quarter: 2016Q4

REPORT INFORMATION
  Report Type: Spontaneous
  Country: US (occurrence: US)
  Receive Date: 20161017
  Receipt Date: 20161017
  Transmission Date: 20170207
  Serious: Yes (Death)
  Sender: FDA-Public Use
  Company Number: US-JNJFOC-20161010815

PATIENT
  Age: 37 Year

DRUGS (7)
  1. LOPERAMIDE [Suspect]
     Active Substance: LOPERAMIDE
     Indication: DRUG ABUSE
     Route: 065
  2. MARIJUANA [Suspect]
     Active Substance: CANNABIS SATIVA SUBSP. INDICA TOP
     Indication: PRODUCT USE ISSUE
     Route: 065
  3. CITALOPRAM [Suspect]
     Active Substance: CITALOPRAM HYDROBROMIDE
     Indication: PRODUCT USED FOR UNKNOWN INDICATION
     Route: 065
  4. QUININE [Suspect]
     Active Substance: QUININE
     Indication: PRODUCT USED FOR UNKNOWN INDICATION
     Route: 065
  5. LOPERAMIDE [Suspect]
     Active Substance: LOPERAMIDE
     Route: 065
  6. PROPRANOLOL [Suspect]
     Active Substance: PROPRANOLOL\PROPRANOLOL HYDROCHLORIDE
     Indication: PRODUCT USED FOR UNKNOWN INDICATION
     Route: 065
  7. MITRAGYNINE [Interacting]
     Active Substance: MITRAGYNINE
     Indication: PRODUCT USED FOR UNKNOWN INDICATION
     Route: 065

REACTIONS (3)
  - Drug abuse [Fatal]
  - Accidental overdose [Fatal]
  - Drug interaction [Fatal]
